FAERS Safety Report 4866808-3 (Version None)
Quarter: 2005Q4

REPORT INFORMATION
  Report Type: 
  Country: None (occurrence: None)
  Receive Date: 20051222
  Receipt Date: 20051212
  Transmission Date: 20060501
  Serious: Yes (Death)
  Sender: FDA-Public Use
  Company Number: 2005-DE-05447GD

PATIENT
  Sex: Female

DRUGS (2)
  1. ZIDOVUDINE [Suspect]
     Indication: PROPHYLAXIS
     Dosage: 600 MG, AND 300 MG EVERY 3 H FROM THE ONSET OF LABOR UNTIL DELIVERY (NR, TWICE DAILY), PO
     Route: 048
  2. ZIDOVUDINE [Suspect]
     Indication: VERTICAL INFECTION TRANSMISSION
     Dosage: 600 MG, AND 300 MG EVERY 3 H FROM THE ONSET OF LABOR UNTIL DELIVERY (NR, TWICE DAILY), PO
     Route: 048

REACTIONS (2)
  - DRUG EXPOSURE DURING PREGNANCY [None]
  - DRUG EXPOSURE VIA BREAST MILK [None]
